FAERS Safety Report 22289402 (Version 1)
Quarter: 2023Q2

REPORT INFORMATION
  Report Type: Spontaneous
  Country: US (occurrence: None)
  Receive Date: 20230504
  Receipt Date: 20230504
  Transmission Date: 20230722
  Serious: Yes (Hospitalization)
  Sender: FDA-Public Use
  Company Number: None

PATIENT
  Sex: Female

DRUGS (2)
  1. XELODA [Suspect]
     Active Substance: CAPECITABINE
     Indication: Breast cancer
     Dosage: FREQUENCY : TWICE A DAY;?
     Route: 048
  2. VENLAFAXINE CALCIUM W/VITAMIN D [Concomitant]

REACTIONS (5)
  - Dehydration [None]
  - Vomiting [None]
  - Fatigue [None]
  - Nausea [None]
  - Therapy interrupted [None]
